FAERS Safety Report 8041188-3 (Version None)
Quarter: 2012Q1

REPORT INFORMATION
  Report Type: 
  Country: None (occurrence: None)
  Receive Date: 20120112
  Receipt Date: 20120104
  Transmission Date: 20120608
  Serious: Yes (Hospitalization, Other)
  Sender: FDA-Public Use
  Company Number: US-BAYER-2011-078735

PATIENT
  Age: 34 Year
  Sex: Female
  Weight: 77.551 kg

DRUGS (2)
  1. YASMIN [Suspect]
     Indication: CONTRACEPTION
     Dosage: UNK
     Dates: start: 20040801, end: 20041001
  2. NSAID'S [Concomitant]
     Indication: PYREXIA
     Dosage: UNK
     Dates: start: 20040901, end: 20041001

REACTIONS (9)
  - PULMONARY EMBOLISM [None]
  - PHLEBITIS [None]
  - EMOTIONAL DISTRESS [None]
  - DYSPNOEA [None]
  - INJURY [None]
  - DEEP VEIN THROMBOSIS [None]
  - POST THROMBOTIC SYNDROME [None]
  - PAIN [None]
  - ANXIETY [None]
